FAERS Safety Report 8404703-3 (Version None)
Quarter: 2012Q2

REPORT INFORMATION
  Report Type: 
  Country: None (occurrence: None)
  Receive Date: 20120601
  Receipt Date: 20120521
  Transmission Date: 20120825
  Serious: Yes (Death, Life-Threatening, Hospitalization)
  Sender: FDA-Public Use
  Company Number: CHPA2012US011232

PATIENT
  Age: 82 Year
  Sex: Male

DRUGS (3)
  1. OMEPRAZOLE [Concomitant]
     Dosage: UNK, UNK
  2. IBUPROFEN [Suspect]
     Indication: ARTHRITIS
     Dosage: 2 TO 3 UNK, QD
     Route: 048
  3. DRUG THERAPY NOS [Concomitant]
     Dosage: UNK, UNK

REACTIONS (5)
  - BACTERIAL DISEASE CARRIER [None]
  - ULCER HAEMORRHAGE [None]
  - HAEMOPTYSIS [None]
  - RECTAL HAEMORRHAGE [None]
  - RED BLOOD CELL COUNT DECREASED [None]
